FAERS Safety Report 5017012-X (Version None)
Quarter: 2006Q2

REPORT INFORMATION
  Report Type: 
  Country: None (occurrence: None)
  Receive Date: 20060526
  Receipt Date: 20060510
  Transmission Date: 20061013
  Serious: Yes (Other)
  Sender: FDA-Public Use
  Company Number: US200604003239

PATIENT
  Age: 55 Year
  Sex: Female

DRUGS (9)
  1. TERIPARATIDE (TERIPARATIDE) [Suspect]
     Indication: OSTEOPOROSIS
     Dosage: 20 UG, SUBCUTANEOUS
     Route: 058
     Dates: start: 20050920, end: 20060101
  2. FORTEO [Concomitant]
  3. CENTRUM (MINERALS NOS, VITAMINS NOS) [Concomitant]
  4. VITAMIN E [Concomitant]
  5. VITAMIN B6 [Concomitant]
  6. ASCORBIC ACID [Concomitant]
  7. SLOW-FE (FERROUS SULFATE) [Concomitant]
  8. CELEXA [Concomitant]
  9. OSCAL 500-D (CALCIUM, COLECALCIFEROL) [Concomitant]

REACTIONS (1)
  - PERICARDIAL EFFUSION [None]
